FAERS Safety Report 7351271-3 (Version None)
Quarter: 2011Q1

REPORT INFORMATION
  Report Type: 
  Country: None (occurrence: None)
  Receive Date: 20110314
  Receipt Date: 20110219
  Transmission Date: 20110831
  Serious: Yes (Hospitalization)
  Sender: FDA-Public Use
  Company Number: GB-BAYER-200941070GPV

PATIENT
  Sex: Female

DRUGS (7)
  1. LEVOTHYROXINE [Concomitant]
     Route: 065
     Dates: start: 20070101
  2. NAPROXEN SODIUM [Suspect]
     Dosage: ONCE PER EIGHT WEEKS
     Route: 042
     Dates: start: 20091030, end: 20091103
  3. CAMELLIA SINENSIS [Concomitant]
     Route: 065
     Dates: start: 20090601
  4. UNCODEABLE ^INVESTIGATIONAL DRUG^ [Suspect]
  5. UNCODEABLE ^INVESTIGATIONAL DRUG^ [Suspect]
     Dosage: ONCE PER EIGHT WEEKS
     Route: 042
     Dates: start: 20091030, end: 20091103
  6. NAPROXEN SODIUM [Suspect]
     Indication: OSTEOARTHRITIS
     Dosage: 500 MG, BID
     Route: 048
     Dates: start: 20091008, end: 20091030
  7. UNCODEABLE ^INVESTIGATIONAL DRUG^ [Suspect]
     Indication: OSTEOARTHRITIS
     Dosage: ONCE PER EIGHT WEEKS
     Route: 042
     Dates: start: 20091030, end: 20091103

REACTIONS (1)
  - RASH [None]
